FAERS Safety Report 9456209 (Version 3)
Quarter: 2014Q1

REPORT INFORMATION
  Report Type: Spontaneous
  Country: JP (occurrence: None)
  Receive Date: 20130808
  Receipt Date: 20140321
  Transmission Date: 20141002
  Serious: Yes (Hospitalization, Other)
  Sender: FDA-Public Use
  Company Number: ABR_00973_2013

PATIENT
  Age: 64 Year
  Sex: Male
  Weight: 46.4 kg

DRUGS (1)
  1. GLIADEL [Suspect]
     Indication: MALIGNANT GLIOMA
     Dosage: INTRACEREBRAL
     Dates: start: 20130212, end: 20130212

REACTIONS (6)
  - Brain oedema [None]
  - Movement disorder [None]
  - Brain neoplasm [None]
  - Malignant glioma [None]
  - Condition aggravated [None]
  - Hemiplegia [None]
